FAERS Safety Report 5134398-6 (Version None)
Quarter: 2006Q4

REPORT INFORMATION
  Report Type: 
  Country: None (occurrence: None)
  Receive Date: 20061025
  Receipt Date: 20060425
  Transmission Date: 20070319
  Serious: Yes (Hospitalization, Other)
  Sender: FDA-Public Use
  Company Number: PL-BAYER-200611693GDS

PATIENT
  Age: 64 Year
  Sex: Male
  Weight: 82 kg

DRUGS (30)
  1. SORAFENIB [Suspect]
     Indication: RENAL CELL CARCINOMA STAGE UNSPECIFIED
     Dosage: TOTAL DAILY DOSE: 400 MG
     Route: 048
     Dates: start: 20050620, end: 20050620
  2. SORAFENIB [Suspect]
     Dosage: TOTAL DAILY DOSE: 400 MG
     Route: 048
     Dates: start: 20050817, end: 20050817
  3. SORAFENIB [Suspect]
     Dosage: TOTAL DAILY DOSE: 400 MG
     Route: 048
     Dates: start: 20060421, end: 20060421
  4. SORAFENIB [Suspect]
     Route: 048
     Dates: start: 20060429
  5. SORAFENIB [Suspect]
     Dosage: TOTAL DAILY DOSE: 800 MG
     Route: 048
     Dates: start: 20051215, end: 20051221
  6. SORAFENIB [Suspect]
     Dosage: TOTAL DAILY DOSE: 800 MG
     Route: 048
     Dates: start: 20051020, end: 20051213
  7. SORAFENIB [Suspect]
     Dosage: TOTAL DAILY DOSE: 800 MG
     Route: 048
     Dates: start: 20050818, end: 20051018
  8. SORAFENIB [Suspect]
     Dosage: TOTAL DAILY DOSE: 800 MG
     Route: 048
     Dates: start: 20050621, end: 20050816
  9. SORAFENIB [Suspect]
     Dosage: TOTAL DAILY DOSE: 400 MG
     Route: 048
     Dates: start: 20051019, end: 20051019
  10. SORAFENIB [Suspect]
     Dosage: TOTAL DAILY DOSE: 400 MG
     Route: 048
     Dates: start: 20051214, end: 20051214
  11. SORAFENIB [Suspect]
     Dosage: TOTAL DAILY DOSE: 400 MG
     Route: 048
     Dates: start: 20051222, end: 20060214
  12. SORAFENIB [Suspect]
     Dosage: TOTAL DAILY DOSE: 800 MG
     Route: 048
     Dates: start: 20060214, end: 20060420
  13. BISOCARD [Concomitant]
     Indication: HYPERTENSION
     Route: 048
     Dates: start: 20041201
  14. BLOCARD [Concomitant]
     Indication: HYPERTENSION
     Route: 048
     Dates: start: 20041201
  15. ZOCOR [Concomitant]
     Indication: HYPERTENSION
     Route: 048
     Dates: start: 20041201
  16. GENSULIN [Concomitant]
     Indication: DIABETES MELLITUS
     Route: 058
     Dates: start: 20050217
  17. GENSULIN [Concomitant]
     Route: 058
     Dates: start: 20050114
  18. AMLOPIN [Concomitant]
     Indication: HYPERTENSION
     Route: 048
     Dates: start: 20050217
  19. AMLOPIN [Concomitant]
     Route: 048
     Dates: start: 20051229
  20. KREON [Concomitant]
     Indication: UNEVALUABLE EVENT
     Route: 048
     Dates: start: 20060404
  21. KREON [Concomitant]
     Route: 048
     Dates: start: 20051214
  22. EUTHYROX [Concomitant]
     Indication: HYPOTHYROIDISM
     Route: 048
     Dates: start: 20060417
  23. LOPERAMIDE [Concomitant]
     Indication: DIARRHOEA
     Route: 048
     Dates: start: 20060316, end: 20060503
  24. SODIUM CHLORIDE [Concomitant]
     Indication: HYPERGLYCAEMIA
     Dosage: AS USED: 0.9 %
     Route: 065
     Dates: start: 20051201, end: 20051206
  25. ARTRESAN [Concomitant]
     Indication: PAIN
     Route: 065
     Dates: start: 20051208, end: 20060503
  26. METIZOL [Concomitant]
     Indication: HYPERTENSION
     Route: 065
     Dates: start: 20050815, end: 20050913
  27. KALIPOZ [Concomitant]
     Indication: DRUG USE FOR UNKNOWN INDICATION
     Route: 048
  28. ALFADIOL [Concomitant]
     Indication: DRUG USE FOR UNKNOWN INDICATION
     Route: 065
  29. KALIPOZ [Concomitant]
     Route: 048
  30. SPIRONOL [Concomitant]
     Indication: DRUG USE FOR UNKNOWN INDICATION
     Route: 065

REACTIONS (6)
  - BLOOD MAGNESIUM DECREASED [None]
  - BLOOD PHOSPHORUS DECREASED [None]
  - DIARRHOEA [None]
  - HYPOCALCAEMIA [None]
  - HYPOTHYROIDISM [None]
  - RENAL FAILURE CHRONIC [None]
